FAERS Safety Report 8409850-8 (Version None)
Quarter: 2012Q2

REPORT INFORMATION
  Report Type: 
  Country: None (occurrence: None)
  Receive Date: 20120605
  Receipt Date: 20120529
  Transmission Date: 20120825
  Serious: No
  Sender: FDA-Public Use
  Company Number: US-PFIZER INC-2012129865

PATIENT

DRUGS (1)
  1. PROTONIX [Suspect]
     Dosage: 40 MG, 2X/DAY

REACTIONS (1)
  - DRUG SCREEN POSITIVE [None]
